FAERS Safety Report 5053156-4 (Version None)
Quarter: 2006Q3

REPORT INFORMATION
  Report Type: 
  Country: None (occurrence: None)
  Receive Date: 20060712
  Receipt Date: 20060621
  Transmission Date: 20061208
  Serious: Yes (Other)
  Sender: FDA-Public Use
  Company Number: US200606004774

PATIENT
  Age: 3 Year
  Sex: Female
  Weight: 13.6 kg

DRUGS (1)
  1. STRATTERA [Suspect]
     Dosage: 5.88 MG/KG, OTHER, ORAL
     Route: 048

REACTIONS (1)
  - OVERDOSE [None]
